FAERS Safety Report 16032077 (Version 1)
Quarter: 2019Q1

REPORT INFORMATION
  Report Type: Spontaneous
  Country: US (occurrence: US)
  Receive Date: 20190304
  Receipt Date: 20190304
  Transmission Date: 20190418
  Serious: No
  Sender: FDA-Public Use
  Company Number: PHEH2019US008508

PATIENT
  Age: 75 Year
  Sex: Female
  Weight: 79.83 kg

DRUGS (1)
  1. VOTRIENT [Suspect]
     Active Substance: PAZOPANIB HYDROCHLORIDE
     Indication: RENAL CANCER
     Dosage: 400 MG, QD (ONCE DAILY)
     Route: 048
     Dates: start: 20180101, end: 20190211

REACTIONS (3)
  - Headache [Recovered/Resolved]
  - Erythema [Recovered/Resolved]
  - Diarrhoea [Recovering/Resolving]

NARRATIVE: CASE EVENT DATE: 20180107
